FAERS Safety Report 8114259-0 (Version None)
Quarter: 2012Q1

REPORT INFORMATION
  Report Type: 
  Country: None (occurrence: None)
  Receive Date: 20120206
  Receipt Date: 20120126
  Transmission Date: 20120608
  Serious: Yes (Life-Threatening, Hospitalization)
  Sender: FDA-Public Use
  Company Number: IT-BIOGENIDEC-2011BI030433

PATIENT
  Age: 41 Year
  Sex: Female

DRUGS (2)
  1. METHYLTHIOPHENATE NOS [Concomitant]
     Dates: start: 20101012
  2. TYSABRI [Suspect]
     Indication: RELAPSING-REMITTING MULTIPLE SCLEROSIS
     Route: 042
     Dates: start: 20100615

REACTIONS (1)
  - INTENTIONAL SELF-INJURY [None]
